FAERS Safety Report 7647221-2 (Version None)
Quarter: 2011Q3

REPORT INFORMATION
  Report Type: 
  Country: None (occurrence: None)
  Receive Date: 20110801
  Receipt Date: 20110725
  Transmission Date: 20111222
  Serious: Yes (Life-Threatening)
  Sender: FDA-Public Use
  Company Number: JP-SHIRE-ALL1-2011-02459

PATIENT
  Age: 62 Year
  Sex: Female

DRUGS (2)
  1. FOSRENOL [Suspect]
     Indication: HYPERPHOSPHATAEMIA
     Dosage: 750 MG/DAY, 1X/DAY:QD
     Route: 048
     Dates: start: 20110101, end: 20110601
  2. FOSRENOL [Suspect]
     Dosage: 1500MG/DAY,1X:QD
     Route: 048
     Dates: start: 20110601, end: 20110714

REACTIONS (1)
  - GASTROINTESTINAL PERFORATION [None]
